FAERS Safety Report 7596238-5 (Version None)
Quarter: 2011Q3

REPORT INFORMATION
  Report Type: 
  Country: None (occurrence: None)
  Receive Date: 20110707
  Receipt Date: 20110622
  Transmission Date: 20111222
  Serious: Yes (Hospitalization)
  Sender: FDA-Public Use
  Company Number: JP-GENENTECH-307086

PATIENT
  Sex: Male

DRUGS (11)
  1. VIGAMOX [Concomitant]
     Indication: PRODUCT USED FOR UNKNOWN INDICATION
     Dosage: UNK
     Dates: start: 20100501, end: 20100501
  2. RANIBIZUMAB [Suspect]
     Dosage: 0.05 ML, UNK
     Route: 031
     Dates: start: 20090805
  3. RANIBIZUMAB [Suspect]
     Dosage: 0.05 ML, UNK
     Route: 031
     Dates: start: 20100518
  4. ARTIFICIAL TEARS [Concomitant]
     Indication: PRODUCT USED FOR UNKNOWN INDICATION
  5. CANDESARTAN CILEXETIL [Concomitant]
     Indication: PRODUCT USED FOR UNKNOWN INDICATION
  6. JUVELA NICOTINATE [Concomitant]
     Indication: PRODUCT USED FOR UNKNOWN INDICATION
     Dosage: UNK
     Dates: start: 20100319
  7. LEVOFLOXACIN [Concomitant]
     Indication: PRODUCT USED FOR UNKNOWN INDICATION
     Dosage: UNK
     Dates: start: 20090501, end: 20090801
  8. RANIBIZUMAB [Suspect]
     Indication: AGE-RELATED MACULAR DEGENERATION
     Dosage: 0.05 ML, UNK
     Route: 031
     Dates: start: 20090527
  9. RANIBIZUMAB [Suspect]
     Dosage: 0.05 ML, UNK
     Route: 031
     Dates: start: 20090708
  10. SIGMART [Concomitant]
     Indication: PRODUCT USED FOR UNKNOWN INDICATION
  11. AVASTIN [Concomitant]
     Indication: PRODUCT USED FOR UNKNOWN INDICATION
     Dosage: UNK
     Dates: start: 20101004, end: 20101206

REACTIONS (3)
  - VISUAL ACUITY REDUCED [None]
  - CATARACT OPERATION [None]
  - MACULAR HOLE [None]
